FAERS Safety Report 10477545 (Version 6)
Quarter: 2015Q2

REPORT INFORMATION
  Report Type: Report from Study
  Country: TR (occurrence: TR)
  Receive Date: 20140926
  Receipt Date: 20150602
  Transmission Date: 20150821
  Serious: Yes (Hospitalization)
  Sender: FDA-Public Use
  Company Number: PHHY2014TR094927

PATIENT
  Age: 13 Year
  Sex: Male
  Weight: 33.7 kg

DRUGS (3)
  1. EXJADE [Suspect]
     Active Substance: DEFERASIROX
     Dosage: 35 MG/KG, QD
     Route: 048
     Dates: start: 20140205
  2. EXJADE [Suspect]
     Active Substance: DEFERASIROX
     Indication: APLASTIC ANAEMIA
     Dosage: 1000 MG, DAILY
     Route: 048
     Dates: start: 20140124
  3. EXJADE [Suspect]
     Active Substance: DEFERASIROX
     Dosage: 1000 MG, QD
     Route: 048
     Dates: end: 20150522

REACTIONS (9)
  - Pyrexia [Not Recovered/Not Resolved]
  - Febrile neutropenia [Recovered/Resolved]
  - Aphthous stomatitis [Unknown]
  - Headache [Not Recovered/Not Resolved]
  - C-reactive protein increased [Unknown]
  - Pyrexia [Recovered/Resolved]
  - Pneumonia [Not Recovered/Not Resolved]
  - Abdominal pain [Not Recovered/Not Resolved]
  - Serum ferritin increased [Unknown]

NARRATIVE: CASE EVENT DATE: 20140623
